FAERS Safety Report 11109822 (Version 1)
Quarter: 2015Q2

REPORT INFORMATION
  Report Type: Spontaneous
  Country: FR (occurrence: FR)
  Receive Date: 20150513
  Receipt Date: 20150513
  Transmission Date: 20150821
  Serious: Yes (Other)
  Sender: FDA-Public Use
  Company Number: FR-TEVA-561671ISR

PATIENT
  Sex: Female

DRUGS (1)
  1. METHOTREXATE [Suspect]
     Active Substance: METHOTREXATE
     Dosage: 48 GRAM DAILY; RECEIVED METHOTREXATE 9 AND 8 WEEKS BEFORE CONCEPTION
     Route: 065

REACTIONS (4)
  - Maternal exposure before pregnancy [Unknown]
  - Abortion induced [Unknown]
  - Oligohydramnios [Unknown]
  - Premature rupture of membranes [Unknown]
